FAERS Safety Report 4561501-9 (Version None)
Quarter: 2005Q1

REPORT INFORMATION
  Report Type: 
  Country: None (occurrence: None)
  Receive Date: 20050121
  Receipt Date: 20031021
  Transmission Date: 20050727
  Serious: Yes (Hospitalization)
  Sender: FDA-Public Use
  Company Number: 200312859

PATIENT
  Sex: Female

DRUGS (1)
  1. TAZORAC [Suspect]
     Indication: ACNE
     Dates: start: 20030301

REACTIONS (5)
  - DRUG EXPOSURE DURING PREGNANCY [None]
  - DRY SKIN [None]
  - INDUCED LABOUR [None]
  - PREGNANCY INDUCED HYPERTENSION [None]
  - SKIN IRRITATION [None]
